FAERS Safety Report 21419043 (Version 1)
Quarter: 2022Q4

REPORT INFORMATION
  Report Type: Spontaneous
  Country: CN (occurrence: CN)
  Receive Date: 20221006
  Receipt Date: 20221006
  Transmission Date: 20230113
  Serious: Yes (Hospitalization)
  Sender: FDA-Public Use
  Company Number: CN-009507513-2210CHN000180

PATIENT
  Age: 93 Year
  Sex: Male
  Weight: 62 kg

DRUGS (4)
  1. CILASTATIN SODIUM\IMIPENEM [Suspect]
     Active Substance: CILASTATIN SODIUM\IMIPENEM
     Indication: Pneumonia
     Dosage: 2 G, EVERY 8 HOURS (Q8H)
     Route: 041
     Dates: start: 20220207, end: 20220214
  2. TIGECYCLINE [Suspect]
     Active Substance: TIGECYCLINE
     Indication: Pneumonia
     Dosage: 100 MG, Q12H||Q12H
     Route: 041
     Dates: start: 20220207, end: 20220214
  3. SODIUM CHLORIDE [Concomitant]
     Active Substance: SODIUM CHLORIDE
     Indication: Medication dilution
     Dosage: 100 ML, Q8H||Q8H
     Route: 041
     Dates: start: 20220207, end: 20220214
  4. SODIUM CHLORIDE [Concomitant]
     Active Substance: SODIUM CHLORIDE
     Dosage: 100 ML, Q12H||Q12H
     Route: 041
     Dates: start: 20220207, end: 20220214

REACTIONS (4)
  - Abdominal distension [Recovering/Resolving]
  - Dysbiosis [Recovered/Resolved]
  - Diarrhoea [Recovered/Resolved]
  - Product use issue [Unknown]

NARRATIVE: CASE EVENT DATE: 20220207
